FAERS Safety Report 24134403 (Version 1)
Quarter: 2024Q3

REPORT INFORMATION
  Report Type: Report from Study
  Country: CA (occurrence: CA)
  Receive Date: 20240725
  Receipt Date: 20240725
  Transmission Date: 20241017
  Serious: Yes (Hospitalization, Other)
  Sender: ROCHE
  Company Number: CA-002147023-PHHY2016CA045904

PATIENT
  Age: 69 Year
  Sex: Male

DRUGS (1)
  1. XOLAIR [Suspect]
     Active Substance: OMALIZUMAB
     Indication: Asthma
     Dosage: 300 MG, EVERY 4 WEEKS
     Route: 050
     Dates: start: 20130409

REACTIONS (7)
  - Asthma [Unknown]
  - Syncope [Unknown]
  - Pulmonary embolism [Unknown]
  - Malaise [Unknown]
  - Fall [Unknown]
  - Rib fracture [Unknown]
  - White blood cell count increased [Unknown]
